FAERS Safety Report 5031205-7 (Version None)
Quarter: 2006Q2

REPORT INFORMATION
  Report Type: 
  Country: None (occurrence: None)
  Receive Date: 20060621
  Receipt Date: 20060320
  Transmission Date: 20061013
  Serious: No
  Sender: FDA-Public Use
  Company Number: US-GLAXOSMITHKLINE-A0598232A

PATIENT
  Age: 48 Year
  Sex: Male

DRUGS (2)
  1. AVANDARYL [Suspect]
     Route: 048
  2. CHOLESTEROL REDUCING AGENT [Concomitant]

REACTIONS (2)
  - BLOOD GLUCOSE DECREASED [None]
  - DIARRHOEA [None]
